FAERS Safety Report 13378322 (Version 3)
Quarter: 2017Q3

REPORT INFORMATION
  Report Type: Spontaneous
  Country: JP (occurrence: JP)
  Receive Date: 20170328
  Receipt Date: 20170711
  Transmission Date: 20171127
  Serious: Yes (Life-Threatening, Hospitalization)
  Sender: FDA-Public Use
  Company Number: JP-MYLANLABS-2017M1018002

PATIENT

DRUGS (11)
  1. ACELIO [Suspect]
     Active Substance: ACETAMINOPHEN
     Indication: PAIN
     Dosage: 1000 MG, QD
     Route: 041
     Dates: start: 20151008, end: 2015
  2. DIPRIVAN [Suspect]
     Active Substance: PROPOFOL
     Indication: ANAESTHESIA PROCEDURE
     Dosage: UNK
     Route: 041
     Dates: start: 20151008, end: 20151008
  3. LIXIANA [Concomitant]
     Active Substance: EDOXABAN TOSYLATE
     Indication: ATRIAL FIBRILLATION
     Dosage: 30 MG, QD
     Route: 048
  4. REMIFENTANIL [Suspect]
     Active Substance: REMIFENTANIL
     Indication: ANAESTHESIA PROCEDURE
     Dosage: 0.37 MCG/KG/MIN
     Route: 041
     Dates: start: 20151008, end: 20151008
  5. HERBESSER [Concomitant]
     Active Substance: DILTIAZEM HYDROCHLORIDE
     Indication: ATRIAL FIBRILLATION
     Dosage: 100 MG, QD
     Route: 048
  6. FUROSEMIDE. [Suspect]
     Active Substance: FUROSEMIDE
     Indication: POLYURIA
     Dosage: 20 MG, BID
     Route: 041
     Dates: start: 20151008
  7. INOVAN                             /00360702/ [Suspect]
     Active Substance: DOPAMINE HYDROCHLORIDE
     Indication: BLOOD PRESSURE DECREASED
     Dosage: 2.4 MCG/KG/MIN
     Route: 041
     Dates: start: 20151008
  8. NEO SYNESIN [Suspect]
     Active Substance: PHENYLEPHRINE HYDROCHLORIDE
     Indication: BLOOD PRESSURE DECREASED
     Dosage: 0.1
     Route: 041
     Dates: start: 20151008, end: 20151008
  9. SEVOFLURANE MYLAN [Suspect]
     Active Substance: SEVOFLURANE
     Indication: ANAESTHESIA PROCEDURE
     Dosage: 0.5%
     Route: 055
     Dates: start: 20151008, end: 20151008
  10. FENTANYL. [Suspect]
     Active Substance: FENTANYL
     Indication: ANAESTHESIA PROCEDURE
     Dosage: 2 ML
     Route: 041
     Dates: start: 20151008
  11. DOPAMINE [Suspect]
     Active Substance: DOPAMINE\DOPAMINE HYDROCHLORIDE
     Indication: ANAESTHESIA PROCEDURE
     Dosage: 1-3MCG/KG/MIN
     Route: 065

REACTIONS (1)
  - Cardiac failure [Recovered/Resolved]

NARRATIVE: CASE EVENT DATE: 20151008
